FAERS Safety Report 10703645 (Version 6)
Quarter: 2015Q3

REPORT INFORMATION
  Report Type: Spontaneous
  Country: US (occurrence: US)
  Receive Date: 20150112
  Receipt Date: 20150814
  Transmission Date: 20151125
  Serious: Yes (Hospitalization, Other)
  Sender: FDA-Public Use
  Company Number: US-JNJFOC-20150101373

PATIENT
  Age: 76 Year
  Sex: Female

DRUGS (17)
  1. ADEMPAS [Suspect]
     Active Substance: RIOCIGUAT
     Indication: COR PULMONALE CHRONIC
     Route: 048
  2. ADEMPAS [Suspect]
     Active Substance: RIOCIGUAT
     Indication: PULMONARY HYPERTENSION
     Route: 048
  3. ADEMPAS [Suspect]
     Active Substance: RIOCIGUAT
     Indication: COR PULMONALE CHRONIC
     Route: 048
  4. OPSUMIT [Suspect]
     Active Substance: MACITENTAN
     Indication: PRODUCT USED FOR UNKNOWN INDICATION
     Route: 065
  5. XARELTO [Suspect]
     Active Substance: RIVAROXABAN
     Indication: PRODUCT USED FOR UNKNOWN INDICATION
     Route: 048
  6. ADEMPAS [Suspect]
     Active Substance: RIOCIGUAT
     Indication: PULMONARY HYPERTENSION
     Route: 048
  7. ADEMPAS [Suspect]
     Active Substance: RIOCIGUAT
     Indication: COR PULMONALE CHRONIC
     Route: 048
  8. ADEMPAS [Suspect]
     Active Substance: RIOCIGUAT
     Indication: COR PULMONALE CHRONIC
     Route: 048
     Dates: start: 20131218
  9. ADEMPAS [Suspect]
     Active Substance: RIOCIGUAT
     Indication: PULMONARY HYPERTENSION
     Route: 048
     Dates: start: 20131218
  10. ADEMPAS [Suspect]
     Active Substance: RIOCIGUAT
     Indication: PULMONARY HYPERTENSION
     Route: 048
  11. ADEMPAS [Suspect]
     Active Substance: RIOCIGUAT
     Indication: PULMONARY HYPERTENSION
     Route: 048
  12. ADEMPAS [Suspect]
     Active Substance: RIOCIGUAT
     Indication: COR PULMONALE CHRONIC
     Route: 048
  13. ADEMPAS [Suspect]
     Active Substance: RIOCIGUAT
     Indication: PULMONARY HYPERTENSION
     Route: 048
  14. ADEMPAS [Suspect]
     Active Substance: RIOCIGUAT
     Indication: COR PULMONALE CHRONIC
     Route: 048
  15. COUMADIN [Concomitant]
     Active Substance: WARFARIN SODIUM
     Route: 065
  16. ADEMPAS [Suspect]
     Active Substance: RIOCIGUAT
     Indication: PULMONARY HYPERTENSION
     Route: 048
     Dates: start: 20131218
  17. ADEMPAS [Suspect]
     Active Substance: RIOCIGUAT
     Indication: COR PULMONALE CHRONIC
     Route: 048
     Dates: start: 20131218

REACTIONS (12)
  - Herpes zoster [Recovering/Resolving]
  - Bone disorder [Unknown]
  - Swelling [Unknown]
  - Peripheral swelling [Unknown]
  - Fatigue [Unknown]
  - Eye disorder [Unknown]
  - Oedema peripheral [Unknown]
  - Thyroid operation [Unknown]
  - Epistaxis [Unknown]
  - Constipation [Unknown]
  - Pulmonary hypertension [Unknown]
  - Hypersomnia [Unknown]

NARRATIVE: CASE EVENT DATE: 20131229
